FAERS Safety Report 14022033 (Version 1)
Quarter: 2017Q3

REPORT INFORMATION
  Report Type: Spontaneous
  Country: US (occurrence: US)
  Receive Date: 20170928
  Receipt Date: 20170928
  Transmission Date: 20171128
  Serious: No
  Sender: FDA-Public Use
  Company Number: None

PATIENT
  Age: 53 Year
  Sex: Female
  Weight: 74.25 kg

DRUGS (1)
  1. MELOXICAM. [Suspect]
     Active Substance: MELOXICAM
     Indication: PLANTAR FASCIITIS
     Route: 048
     Dates: start: 20140315, end: 20170926

REACTIONS (3)
  - Gingival disorder [None]
  - Oral lichen planus [None]
  - Oral disorder [None]

NARRATIVE: CASE EVENT DATE: 20141208
